FAERS Safety Report 6212157-0 (Version None)
Quarter: 2009Q2

REPORT INFORMATION
  Report Type: 
  Country: None (occurrence: None)
  Receive Date: 20090602
  Receipt Date: 20090527
  Transmission Date: 20091009
  Serious: Yes (Hospitalization)
  Sender: FDA-Public Use
  Company Number: DE-WYE-G03754509

PATIENT
  Age: 60 Year
  Sex: Male
  Weight: 107 kg

DRUGS (18)
  1. TAZOBAC [Suspect]
     Indication: TRACHEOBRONCHITIS
     Route: 042
     Dates: start: 20090310, end: 20090317
  2. COTRIMHEXAL FORTE [Suspect]
     Indication: PROPHYLAXIS
     Route: 048
     Dates: start: 20021201
  3. ZITHROMAX [Suspect]
     Indication: PROPHYLAXIS
     Route: 048
     Dates: start: 20050101
  4. CELLCEPT [Concomitant]
     Indication: ORGAN TRANSPLANT
     Route: 048
     Dates: start: 20021201
  5. DECORTIN-H [Concomitant]
     Indication: ORGAN TRANSPLANT
     Route: 048
     Dates: start: 20021201
  6. DURAGESIC-100 [Concomitant]
     Indication: OSTEOPOROSIS
     Route: 062
     Dates: start: 20060101
  7. FALITHROM [Concomitant]
     Indication: PULMONARY EMBOLISM
     Dosage: AS REQUIRED AFTER INR CONTROL
     Route: 048
     Dates: start: 20080401
  8. GABAPENTIN [Concomitant]
     Indication: POLYNEUROPATHY
     Route: 048
     Dates: start: 20090226
  9. LOCOL [Concomitant]
     Indication: CARDIOVASCULAR EVENT PROPHYLAXIS
     Route: 048
     Dates: start: 20060101
  10. MAGNESIOCARD [Concomitant]
     Indication: MUSCLE SPASMS
     Route: 048
     Dates: start: 20050101
  11. NOVALGIN [Concomitant]
     Indication: OSTEOPOROSIS
     Route: 048
     Dates: start: 20080901
  12. PANTOZOL [Concomitant]
     Indication: PROPHYLAXIS AGAINST GASTROINTESTINAL ULCER
     Route: 048
     Dates: start: 20050101
  13. RAPAMUNE [Concomitant]
     Indication: ORGAN TRANSPLANT
     Route: 048
     Dates: start: 20050101
  14. SPIRIVA [Concomitant]
     Indication: CHRONIC OBSTRUCTIVE PULMONARY DISEASE
     Route: 055
     Dates: start: 20060701
  15. TORSEMIDE [Concomitant]
     Indication: HYPERTENSION
     Route: 048
     Dates: start: 20060601
  16. VIAGRA [Concomitant]
     Indication: PULMONARY HYPERTENSION
     Route: 048
     Dates: start: 20080401
  17. VITAMIN D3 [Concomitant]
     Indication: OSTEOPOROSIS
     Route: 048
     Dates: start: 20060101
  18. CIPROFLOXACIN [Suspect]
     Indication: TRACHEOBRONCHITIS
     Dates: start: 20090310, end: 20090320

REACTIONS (1)
  - GASTROENTERITIS CLOSTRIDIAL [None]
